FAERS Safety Report 17258737 (Version 4)
Quarter: 2020Q3

REPORT INFORMATION
  Report Type: Spontaneous
  Country: US (occurrence: US)
  Receive Date: 20200110
  Receipt Date: 20200702
  Transmission Date: 20201102
  Serious: Yes (Hospitalization)
  Sender: FDA-Public Use
  Company Number: US-ACTELION-A-NJ2020-200311

PATIENT
  Age: 3 Year
  Sex: Female

DRUGS (4)
  1. DIURIL [CHLOROTHIAZIDE] [Concomitant]
     Dosage: 80 MG, Q12HRS
  2. SILDENAFIL. [Concomitant]
     Active Substance: SILDENAFIL
     Dosage: 22 MG, Q6HRS
  3. TRACLEER [Suspect]
     Active Substance: BOSENTAN
     Indication: PRODUCT USED FOR UNKNOWN INDICATION
     Dosage: 19.2 MG, BID
     Route: 048
     Dates: start: 20190715
  4. SILDENAFIL. [Concomitant]
     Active Substance: SILDENAFIL
     Dosage: 1.5 MG

REACTIONS (6)
  - Pneumonia [Recovered/Resolved]
  - Pulmonary hypertension [Unknown]
  - Oxygen consumption [Recovered/Resolved]
  - Respiratory distress [Recovered/Resolved]
  - Respiratory syncytial virus infection [Recovered/Resolved]
  - Viral upper respiratory tract infection [Recovered/Resolved]

NARRATIVE: CASE EVENT DATE: 201911
